FAERS Safety Report 18996443 (Version 1)
Quarter: 2021Q1

REPORT INFORMATION
  Report Type: Spontaneous
  Country: US (occurrence: US)
  Receive Date: 20210311
  Receipt Date: 20210311
  Transmission Date: 20210420
  Serious: Yes (Other)
  Sender: FDA-Public Use
  Company Number: US-SA-2021SA069746

PATIENT
  Age: 81 Year
  Sex: Female

DRUGS (1)
  1. SOLIQUA 100/33 [Suspect]
     Active Substance: INSULIN GLARGINE\LIXISENATIDE
     Indication: TYPE 2 DIABETES MELLITUS
     Dosage: 60 IU, QD
     Dates: start: 20210224

REACTIONS (3)
  - Feeling abnormal [Unknown]
  - Nausea [Unknown]
  - Renal impairment [Unknown]

NARRATIVE: CASE EVENT DATE: 20210225
